FAERS Safety Report 17822671 (Version 1)
Quarter: 2020Q2

REPORT INFORMATION
  Report Type: Spontaneous
  Country: US (occurrence: US)
  Receive Date: 20200526
  Receipt Date: 20200526
  Transmission Date: 20200714
  Serious: No
  Sender: FDA-Public Use
  Company Number: US-ASTRAZENECA-2020SE65922

PATIENT
  Sex: Male

DRUGS (1)
  1. SYMBICORT [Suspect]
     Active Substance: BUDESONIDE\FORMOTEROL FUMARATE DIHYDRATE
     Indication: CHRONIC OBSTRUCTIVE PULMONARY DISEASE
     Dosage: 160/4.5 MCG , UNKNOWN UNKNOWN
     Route: 055

REACTIONS (5)
  - Malaise [Unknown]
  - Weight decreased [Unknown]
  - Drug dose omission by device [Unknown]
  - Intentional device misuse [Unknown]
  - Drug delivery system issue [Unknown]
